FAERS Safety Report 8773787 (Version 3)
Quarter: 2012Q4

REPORT INFORMATION
  Report Type: 
  Country: US (occurrence: US)
  Receive Date: 20120907
  Receipt Date: 20121105
  Transmission Date: 20130627
  Serious: No
  Sender: FDA-Public Use
  Company Number: US-PFIZER INC-2012218443

PATIENT
  Age: 55 Year
  Sex: Female
  Weight: 68.03 kg

DRUGS (3)
  1. EFFEXOR XR [Suspect]
     Indication: DEPRESSION
     Dosage: 75 mg, 2x/day
  2. HYDROCHLOROTHIAZIDE [Concomitant]
     Indication: BLOOD PRESSURE HIGH
     Dosage: 25 mg, daily
  3. CARVEDILOL [Concomitant]
     Indication: BLOOD PRESSURE HIGH
     Dosage: 6.25 mg, daily

REACTIONS (2)
  - Fungal infection [Not Recovered/Not Resolved]
  - Hormone level abnormal [Unknown]
